FAERS Safety Report 9320536 (Version 2)
Quarter: 2013Q4

REPORT INFORMATION
  Report Type: Spontaneous
  Country: US (occurrence: US)
  Receive Date: 20130531
  Receipt Date: 20131016
  Transmission Date: 20140711
  Serious: No
  Sender: FDA-Public Use
  Company Number: US-B.I. PHARMACEUTICALS,INC./RIDGEFIELD-2013-BI-14987BP

PATIENT
  Sex: Female

DRUGS (19)
  1. SPIRIVA [Suspect]
  2. COMBIVENT [Concomitant]
     Dosage: 18-103 MCG/ACT
  3. VENTOLIN HFA [Concomitant]
     Dosage: 108 (90 BASE) MCG/ACT
  4. ALBUTEROL SULFATE [Concomitant]
     Dosage: 2.5 (MG/3ML) 0.083%
  5. SYMBICORT [Concomitant]
     Dosage: 160-4.5 MCG/ACT
  6. PROBIOTIC [Concomitant]
  7. PRILOSEC OTC [Concomitant]
  8. VITAMIN B12 [Concomitant]
  9. ZINC [Concomitant]
  10. NORVASC [Concomitant]
  11. MUCINEX [Concomitant]
     Dosage: FORMULATION: TABLET EXTENDED 12 HOUR
  12. ADVAIR HFA [Concomitant]
     Dosage: 230-21 MCG/ ACT AEROSOL
  13. ATROVENT [Concomitant]
  14. MONISTAT 1 [Concomitant]
     Dosage: FORMULATION : OINTMENT
  15. VITAMIN D [Concomitant]
  16. DULERA [Concomitant]
     Dosage: FORMULATION: 200-5 MCG/ACT AEROSOL SOLUTION
  17. LEVAQUIN [Concomitant]
  18. PRAVASTATIN SODIUM [Concomitant]
  19. COMBIVENT RESPIMAT [Concomitant]
     Dosage: 20-100 MCG/ ACT AEROSOL SOLUTION

REACTIONS (1)
  - Breath odour [Unknown]
